FAERS Safety Report 24307511 (Version 1)
Quarter: 2024Q3

REPORT INFORMATION
  Report Type: Spontaneous
  Country: US (occurrence: US)
  Receive Date: 20240911
  Receipt Date: 20240911
  Transmission Date: 20241017
  Serious: No
  Sender: CSL BEHRING
  Company Number: US-BEH-2024178354

PATIENT
  Age: 4 Year
  Sex: Male

DRUGS (4)
  1. IDELVION [Suspect]
     Active Substance: COAGULATION FACTOR IX RECOMBINANT HUMAN
     Indication: Factor IX deficiency
     Dosage: 1600 IU, QW
     Route: 042
     Dates: start: 202312
  2. IDELVION [Suspect]
     Active Substance: COAGULATION FACTOR IX RECOMBINANT HUMAN
     Indication: Factor IX deficiency
     Dosage: 1600 IU, QW
     Route: 042
     Dates: start: 202312
  3. IDELVION [Suspect]
     Active Substance: COAGULATION FACTOR IX RECOMBINANT HUMAN
     Dosage: 1600 IU, QW
     Route: 042
     Dates: start: 202312
  4. IDELVION [Suspect]
     Active Substance: COAGULATION FACTOR IX RECOMBINANT HUMAN
     Dosage: 1600 IU, QW
     Route: 042
     Dates: start: 202312

REACTIONS (1)
  - Ear haemorrhage [Unknown]

NARRATIVE: CASE EVENT DATE: 20240101
